FAERS Safety Report 15376451 (Version 5)
Quarter: 2019Q2

REPORT INFORMATION
  Report Type: Report from Study
  Country: JP (occurrence: JP)
  Receive Date: 20180912
  Receipt Date: 20190603
  Transmission Date: 20190711
  Serious: Yes (Death, Other)
  Sender: FDA-Public Use
  Company Number: PHJP2018JP016197

PATIENT
  Sex: Male

DRUGS (32)
  1. ARZERRA [Suspect]
     Active Substance: OFATUMUMAB
     Dosage: 2000 MG, UNK
     Route: 041
     Dates: start: 20170802
  2. ARZERRA [Suspect]
     Active Substance: OFATUMUMAB
     Dosage: 2000 MG, UNK
     Route: 041
     Dates: start: 20171018
  3. NEOMALLERMIN [Concomitant]
     Active Substance: DEXCHLORPHENIRAMINE MALEATE
     Dosage: 2 MG, UNK
     Route: 065
     Dates: start: 20170719
  4. POLARAMINE [Concomitant]
     Active Substance: DEXCHLORPHENIRAMINE MALEATE
     Dosage: 5 MG, UNK
     Route: 065
     Dates: start: 20171018
  5. ARZERRA [Suspect]
     Active Substance: OFATUMUMAB
     Dosage: 2000 MG, UNK
     Route: 041
     Dates: start: 20170726
  6. ARZERRA [Suspect]
     Active Substance: OFATUMUMAB
     Dosage: 2000 MG, UNK
     Route: 041
     Dates: start: 20170816
  7. ACETAMINOPHEN. [Concomitant]
     Active Substance: ACETAMINOPHEN
     Dosage: 400 MG, UNK
     Route: 065
     Dates: start: 20170710
  8. ACETAMINOPHEN. [Concomitant]
     Active Substance: ACETAMINOPHEN
     Dosage: 400 MG, UNK
     Route: 065
     Dates: start: 20170802
  9. POLARAMINE [Concomitant]
     Active Substance: DEXCHLORPHENIRAMINE MALEATE
     Dosage: 5 MG, UNK
     Route: 065
     Dates: start: 20170809
  10. BACTRAMIN [Concomitant]
     Active Substance: SULFAMETHOXAZOLE\TRIMETHOPRIM
     Indication: INFECTION PROPHYLAXIS
     Dosage: 4 DF, QW2
     Route: 048
  11. ARZERRA [Suspect]
     Active Substance: OFATUMUMAB
     Indication: CHRONIC LYMPHOCYTIC LEUKAEMIA
     Dosage: 300 MG, UNK
     Route: 041
     Dates: start: 20170703
  12. ARZERRA [Suspect]
     Active Substance: OFATUMUMAB
     Dosage: 2000 MG, UNK
     Route: 041
     Dates: start: 20170710
  13. ARZERRA [Suspect]
     Active Substance: OFATUMUMAB
     Dosage: 2000 MG, UNK
     Route: 041
     Dates: start: 20170823
  14. ARZERRA [Suspect]
     Active Substance: OFATUMUMAB
     Dosage: 2000 MG, UNK
     Route: 041
     Dates: start: 20170920
  15. ACETAMINOPHEN. [Concomitant]
     Active Substance: ACETAMINOPHEN
     Dosage: 400 MG, UNK
     Route: 065
     Dates: start: 20170719
  16. NEOMALLERMIN [Concomitant]
     Active Substance: DEXCHLORPHENIRAMINE MALEATE
     Dosage: 2 MG, UNK
     Route: 065
     Dates: start: 20170726
  17. ACETAMINOPHEN. [Concomitant]
     Active Substance: ACETAMINOPHEN
     Indication: PREMEDICATION
     Dosage: 400 MG, UNK
     Route: 065
     Dates: start: 20170703
  18. ACETAMINOPHEN. [Concomitant]
     Active Substance: ACETAMINOPHEN
     Dosage: 400 MG, UNK
     Route: 065
     Dates: start: 20170823
  19. POLARAMINE [Concomitant]
     Active Substance: DEXCHLORPHENIRAMINE MALEATE
     Dosage: 5 MG, UNK
     Route: 065
     Dates: start: 20170823
  20. ACETAMINOPHEN. [Concomitant]
     Active Substance: ACETAMINOPHEN
     Dosage: 400 MG, UNK
     Route: 065
     Dates: start: 20170809
  21. ACETAMINOPHEN. [Concomitant]
     Active Substance: ACETAMINOPHEN
     Dosage: 400 MG, UNK
     Route: 065
     Dates: start: 20170920
  22. ACETAMINOPHEN. [Concomitant]
     Active Substance: ACETAMINOPHEN
     Dosage: 400 MG, UNK
     Route: 065
     Dates: start: 20171018
  23. POLARAMINE [Concomitant]
     Active Substance: DEXCHLORPHENIRAMINE MALEATE
     Indication: PREMEDICATION
     Dosage: 5 MG, UNK
     Route: 065
     Dates: start: 20170802
  24. POLARAMINE [Concomitant]
     Active Substance: DEXCHLORPHENIRAMINE MALEATE
     Dosage: 5 MG, UNK
     Route: 065
     Dates: start: 20170816
  25. POLARAMINE [Concomitant]
     Active Substance: DEXCHLORPHENIRAMINE MALEATE
     Dosage: 5 MG, UNK
     Route: 065
     Dates: start: 20170920
  26. ACICLOVIR [Concomitant]
     Active Substance: ACYCLOVIR
     Indication: INFECTION PROPHYLAXIS
     Dosage: 200 MG, UNK
     Route: 065
  27. ARZERRA [Suspect]
     Active Substance: OFATUMUMAB
     Dosage: 2000 MG, UNK
     Route: 041
     Dates: start: 20170809
  28. ACETAMINOPHEN. [Concomitant]
     Active Substance: ACETAMINOPHEN
     Dosage: 400 MG, UNK
     Route: 065
     Dates: start: 20170816
  29. NEOMALLERMIN [Concomitant]
     Active Substance: DEXCHLORPHENIRAMINE MALEATE
     Indication: PREMEDICATION
     Dosage: 2 MG, UNK
     Route: 065
     Dates: start: 20170703
  30. ARZERRA [Suspect]
     Active Substance: OFATUMUMAB
     Dosage: 2000 MG, UNK
     Route: 041
     Dates: start: 20170719
  31. ACETAMINOPHEN. [Concomitant]
     Active Substance: ACETAMINOPHEN
     Dosage: 400 MG, UNK
     Route: 065
     Dates: start: 20170726
  32. NEOMALLERMIN [Concomitant]
     Active Substance: DEXCHLORPHENIRAMINE MALEATE
     Dosage: 2 MG, UNK
     Route: 065
     Dates: start: 20170710

REACTIONS (12)
  - Chronic lymphocytic leukaemia [Fatal]
  - Malignant neoplasm progression [Fatal]
  - Hyperkalaemia [Fatal]
  - Dyspnoea [Recovered/Resolved]
  - Blood creatinine increased [Fatal]
  - Hyperphosphataemia [Fatal]
  - Arrhythmia [Fatal]
  - Feeling cold [Recovered/Resolved]
  - Dyspnoea [Recovered/Resolved]
  - Pleural effusion [Not Recovered/Not Resolved]
  - Urticaria [Recovered/Resolved]
  - Hyperhidrosis [Recovered/Resolved]

NARRATIVE: CASE EVENT DATE: 20170703
